FAERS Safety Report 7555642-1 (Version None)
Quarter: 2011Q2

REPORT INFORMATION
  Report Type: 
  Country: None (occurrence: None)
  Receive Date: 20110617
  Receipt Date: 20080702
  Transmission Date: 20111010
  Serious: Yes (Hospitalization)
  Sender: FDA-Public Use
  Company Number: PHHY2008DE37530

PATIENT
  Age: 50 Year
  Sex: Male
  Weight: 85 kg

DRUGS (2)
  1. ASPIRIN [Concomitant]
     Dosage: 2-3 TABLET DAILY
  2. SANDOSTATIN LAR [Suspect]
     Indication: ACROMEGALY
     Dosage: 20-30 MG
     Route: 030
     Dates: start: 20040101

REACTIONS (1)
  - THROMBOSIS [None]
